FAERS Safety Report 5502725-3 (Version None)
Quarter: 2007Q4

REPORT INFORMATION
  Report Type: 
  Country: None (occurrence: None)
  Receive Date: 20071031
  Receipt Date: 20071029
  Transmission Date: 20080405
  Serious: Yes (Death)
  Sender: FDA-Public Use
  Company Number: BR-ASTRAZENECA-2007UW24972

PATIENT
  Age: 75 Year
  Sex: Female

DRUGS (3)
  1. ARIMIDEX [Suspect]
     Indication: BREAST CANCER
     Route: 048
  2. MEDICATION FOR HYPERTENSION [Concomitant]
     Indication: HYPERTENSION
  3. MEDICATION FOR HYPERCHOLESTEROLEMIA [Concomitant]
     Indication: HYPERCHOLESTEROLAEMIA

REACTIONS (2)
  - INFECTION [None]
  - THROMBOSIS [None]
